FAERS Safety Report 15735843 (Version 4)
Quarter: 2018Q4

REPORT INFORMATION
  Report Type: Spontaneous
  Country: CA (occurrence: CA)
  Receive Date: 20181218
  Receipt Date: 20181227
  Transmission Date: 20190205
  Serious: Yes (Hospitalization, Disabling, Other)
  Sender: FDA-Public Use
  Company Number: PHHY2018CA183053

PATIENT
  Sex: Male

DRUGS (2)
  1. IMATINIB. [Suspect]
     Active Substance: IMATINIB MESYLATE
     Indication: CHRONIC GRAFT VERSUS HOST DISEASE
     Dosage: 100 OT, QD
     Route: 048
     Dates: start: 2012
  2. CICLOSPORIN [Suspect]
     Active Substance: CYCLOSPORINE
     Indication: CHRONIC GRAFT VERSUS HOST DISEASE
     Dosage: 75 OT, BID
     Route: 048

REACTIONS (8)
  - Aphasia [Unknown]
  - Paraplegia [Unknown]
  - Cerebrovascular accident [Recovering/Resolving]
  - Confusional state [Unknown]
  - Disorientation [Unknown]
  - Scleroderma [Unknown]
  - Motor dysfunction [Unknown]
  - Product use in unapproved indication [Unknown]

NARRATIVE: CASE EVENT DATE: 20171107
